FAERS Safety Report 15130666 (Version 1)
Quarter: 2018Q3

REPORT INFORMATION
  Report Type: Spontaneous
  Country: FR (occurrence: FR)
  Receive Date: 20180711
  Receipt Date: 20180711
  Transmission Date: 20181010
  Serious: Yes (Hospitalization)
  Sender: FDA-Public Use
  Company Number: FR-JNJFOC-20180710362

PATIENT
  Age: 45 Year
  Sex: Male
  Weight: 82 kg

DRUGS (2)
  1. FLUINDIONE [Suspect]
     Active Substance: FLUINDIONE
     Indication: PRODUCT USED FOR UNKNOWN INDICATION
     Route: 048
  2. XARELTO [Suspect]
     Active Substance: RIVAROXABAN
     Indication: THROMBOSIS PROPHYLAXIS
     Route: 048

REACTIONS (6)
  - Haemorrhage [Recovered/Resolved]
  - Gingival bleeding [Recovered/Resolved]
  - Haematoma [Unknown]
  - Melaena [Recovered/Resolved]
  - Product selection error [Recovered/Resolved]
  - Haematuria [Recovered/Resolved]

NARRATIVE: CASE EVENT DATE: 2018
